FAERS Safety Report 10970231 (Version 2)
Quarter: 2015Q2

REPORT INFORMATION
  Report Type: Spontaneous
  Country: US (occurrence: None)
  Receive Date: 20150327
  Receipt Date: 20150421
  Transmission Date: 20150821
  Serious: No
  Sender: FDA-Public Use
  Company Number: DEP_02596_2015

PATIENT
  Age: 42 Year
  Sex: Male

DRUGS (2)
  1. GABAPENTIN 300 MG [Suspect]
     Active Substance: GABAPENTIN
     Indication: INTENTIONAL PRODUCT MISUSE
     Dosage: 300 MG, TAKING UP TO FIVE 300 MG TABLETS)?
  2. QUETIAPINE 200 MG (QUETIAPINE) [Suspect]
     Active Substance: QUETIAPINE
     Indication: INTENTIONAL PRODUCT MISUSE
     Dosage: 200 MG, TAKING THREE TO FOUR 200 MG?

REACTIONS (3)
  - Drug abuse [None]
  - Legal problem [None]
  - Intentional product misuse [None]
